FAERS Safety Report 7776379-X (Version None)
Quarter: 2011Q3

REPORT INFORMATION
  Report Type: 
  Country: None (occurrence: None)
  Receive Date: 20110926
  Receipt Date: 20110915
  Transmission Date: 20111222
  Serious: Yes (Other)
  Sender: FDA-Public Use
  Company Number: CA-JNJFOC-20110908119

PATIENT
  Sex: Female

DRUGS (7)
  1. ASPIRIN [Concomitant]
  2. PREMARIN [Concomitant]
  3. FOLIC ACID [Concomitant]
  4. SIMPONI [Suspect]
     Indication: RHEUMATOID ARTHRITIS
     Route: 058
     Dates: start: 20110530, end: 20110530
  5. METOPROLOL SUCCINATE [Concomitant]
  6. METHOTREXATE [Concomitant]
     Route: 058
  7. DIOVAN [Concomitant]

REACTIONS (4)
  - PARAESTHESIA [None]
  - NAUSEA [None]
  - BLOOD PRESSURE INCREASED [None]
  - RASH [None]
